FAERS Safety Report 7291171-0 (Version None)
Quarter: 2011Q1

REPORT INFORMATION
  Report Type: 
  Country: None (occurrence: None)
  Receive Date: 20110214
  Receipt Date: 20110201
  Transmission Date: 20110831
  Serious: Yes (Other)
  Sender: FDA-Public Use
  Company Number: US-MERCK-1101USA03524

PATIENT
  Age: 54 Year
  Sex: Female

DRUGS (3)
  1. LANSOPRAZOLE [Concomitant]
     Route: 065
  2. COZAAR [Suspect]
     Indication: HYPERTENSION
     Route: 048
  3. COZAAR [Suspect]
     Route: 048

REACTIONS (8)
  - PRESYNCOPE [None]
  - DEAFNESS [None]
  - ASTHENIA [None]
  - HYPERHIDROSIS [None]
  - LOSS OF CONSCIOUSNESS [None]
  - FEELING ABNORMAL [None]
  - NAUSEA [None]
  - TACHYCARDIA [None]
